FAERS Safety Report 26173408 (Version 1)
Quarter: 2025Q4

REPORT INFORMATION
  Report Type: Spontaneous
  Country: US (occurrence: US)
  Receive Date: 20251218
  Receipt Date: 20251218
  Transmission Date: 20260117
  Serious: No
  Sender: NOVARTIS
  Company Number: US-002147023-NVSC2025US191230

PATIENT
  Sex: Female

DRUGS (3)
  1. COSENTYX [Suspect]
     Active Substance: SECUKINUMAB
     Indication: Psoriasis
     Dosage: UNK
     Route: 042
  2. COSENTYX [Suspect]
     Active Substance: SECUKINUMAB
     Indication: Psoriatic arthropathy
     Dosage: 1.6 ML, QMO (VIAL)
     Route: 042
     Dates: start: 202507, end: 20251110
  3. CODEINE [Concomitant]
     Active Substance: CODEINE
     Indication: Insomnia
     Dosage: UNK
     Route: 065

REACTIONS (6)
  - Pain [Unknown]
  - Peripheral swelling [Unknown]
  - Muscular weakness [Unknown]
  - Psoriasis [Unknown]
  - Rash [Unknown]
  - Discomfort [Unknown]
